FAERS Safety Report 6849207-4 (Version None)
Quarter: 2010Q3

REPORT INFORMATION
  Report Type: 
  Country: None (occurrence: None)
  Receive Date: 20100716
  Receipt Date: 20071214
  Transmission Date: 20110219
  Serious: No
  Sender: FDA-Public Use
  Company Number: US-PFIZER INC-2007081445

PATIENT
  Sex: Female
  Weight: 77.1 kg

DRUGS (7)
  1. CHANTIX [Suspect]
     Indication: SMOKING CESSATION THERAPY
     Dates: start: 20070510
  2. WELLBUTRIN [Concomitant]
  3. LISINOPRIL [Concomitant]
  4. ALL OTHER THERAPEUTIC PRODUCTS [Concomitant]
  5. RISPERIDONE [Concomitant]
  6. ROZEREM [Concomitant]
  7. STOOL SOFTENER [Concomitant]

REACTIONS (9)
  - ABDOMINAL DISCOMFORT [None]
  - ABNORMAL DREAMS [None]
  - DEPRESSION [None]
  - DIARRHOEA [None]
  - DYSGEUSIA [None]
  - FLATULENCE [None]
  - NAUSEA [None]
  - NIGHTMARE [None]
  - VOMITING [None]
